FAERS Safety Report 22268340 (Version 1)
Quarter: 2023Q2

REPORT INFORMATION
  Report Type: Spontaneous
  Country: JP (occurrence: JP)
  Receive Date: 20230430
  Receipt Date: 20230430
  Transmission Date: 20230721
  Serious: Yes (Hospitalization, Other)
  Sender: FDA-Public Use
  Company Number: JP-CHUGAI-2023014910

PATIENT
  Sex: Female

DRUGS (3)
  1. ACTEMRA [Suspect]
     Active Substance: TOCILIZUMAB
     Indication: Rheumatoid arthritis
     Dosage: UNK, ONCE/2WEEKS
     Route: 058
     Dates: end: 2022
  2. ACTEMRA [Suspect]
     Active Substance: TOCILIZUMAB
     Dosage: UNK, ONCE/2WEEKS
     Route: 058
     Dates: start: 202212
  3. KEVZARA [Concomitant]
     Active Substance: SARILUMAB
     Dosage: UNK
     Route: 065
     Dates: start: 2022, end: 2022

REACTIONS (3)
  - Malaise [Unknown]
  - Renal impairment [Unknown]
  - Haematuria [Unknown]

NARRATIVE: CASE EVENT DATE: 20230401
